FAERS Safety Report 6552930-2 (Version None)
Quarter: 2010Q1

REPORT INFORMATION
  Report Type: 
  Country: None (occurrence: None)
  Receive Date: 20100122
  Receipt Date: 20100115
  Transmission Date: 20100710
  Serious: Yes (Death, Other)
  Sender: FDA-Public Use
  Company Number: 2010BN000009

PATIENT
  Age: 46 Year
  Sex: Female

DRUGS (3)
  1. MELPHALAN HYDROCHLORIDE [Suspect]
  2. PREDNISONE [Concomitant]
  3. HORMONES NOS [Concomitant]

REACTIONS (2)
  - AMYLOIDOSIS [None]
  - CARDIAC FAILURE [None]
